FAERS Safety Report 4681035-0 (Version None)
Quarter: 2005Q2

REPORT INFORMATION
  Report Type: 
  Country: None (occurrence: None)
  Receive Date: 20050601
  Receipt Date: 20050520
  Transmission Date: 20051028
  Serious: Yes (Life-Threatening, Hospitalization)
  Sender: FDA-Public Use
  Company Number: 2005068827

PATIENT
  Age: 35 Year
  Sex: Male
  Weight: 90.7194 kg

DRUGS (12)
  1. XANAX [Suspect]
     Indication: ILL-DEFINED DISORDER
     Dates: start: 20030101, end: 20030101
  2. PEGINTERFERON ALFA-2B (PEGINTERFERON ALFA-2B) [Suspect]
     Indication: HEPATITIS C
     Dosage: 150 MCG (1 IN 1 WK), SUBCUTANEOUS
     Route: 058
     Dates: start: 20021224
  3. RIBAVIRIN [Suspect]
     Indication: HEPATITIS C
     Dosage: 1000 MG (1 IN 1 D), ORAL
     Route: 048
     Dates: start: 20021224
  4. PROCHLORPERAZINE EDISYLATE [Concomitant]
  5. AMITRIPTYLINE HYDROCHLORIDE [Concomitant]
  6. CLONAZEPAM [Concomitant]
  7. PAROXETINE HCL [Concomitant]
  8. PROMETHAZINE [Concomitant]
  9. PANTOPRAZOLE SODIUM [Concomitant]
  10. OXYCODONE HCL [Concomitant]
  11. MORPHINE [Concomitant]
  12. OXYCODONE HYDROCHLORIDE AND ACETAMINOPHEN [Concomitant]

REACTIONS (15)
  - ABDOMINAL PAIN [None]
  - ARM AMPUTATION [None]
  - BACK PAIN [None]
  - DEPRESSION [None]
  - DIABETES MELLITUS [None]
  - DRUG ABUSER [None]
  - GAS GANGRENE [None]
  - LIMB CRUSHING INJURY [None]
  - LOSS OF CONSCIOUSNESS [None]
  - NERVE INJURY [None]
  - OVERDOSE [None]
  - PANCREATITIS [None]
  - POSTOPERATIVE INFECTION [None]
  - PYREXIA [None]
  - THROMBOPHLEBITIS [None]
